FAERS Safety Report 17212952 (Version 1)
Quarter: 2019Q4

REPORT INFORMATION
  Report Type: Spontaneous
  Country: FR (occurrence: FR)
  Receive Date: 20191230
  Receipt Date: 20191230
  Transmission Date: 20200122
  Serious: Yes (Hospitalization)
  Sender: FDA-Public Use
  Company Number: FR-TEVA-2019-FR-1159791

PATIENT
  Age: 71 Year
  Sex: Male
  Weight: 93 kg

DRUGS (13)
  1. KERLONE 20 MG, COMPRIM? PELLICUL? S?CABLE [Concomitant]
     Dosage: 1 DOSAGE FORM PER DAY
     Route: 048
  2. RILMENIDINE [Concomitant]
     Active Substance: RILMENIDINE
     Dosage: 2 MILLIGRAM PER DAY
     Route: 048
  3. CAPECITABINE. [Suspect]
     Active Substance: CAPECITABINE
     Indication: HEPATOCELLULAR CARCINOMA
     Dosage: 5000 MILLIGRAM PER DAY
     Route: 048
     Dates: start: 20191026, end: 20191105
  4. EUPRESSYL 60 MG, G?LULE [Concomitant]
     Active Substance: URAPIDIL
     Dosage: 3 DOSAGE FORMS PER 1 DAY
     Route: 048
  5. LERCAN 20 MG, COMPRIM? PELLICUL? [Concomitant]
     Active Substance: LERCANIDIPINE HYDROCHLORIDE
     Dosage: 1 DOSAGE FORM PER DAY
     Route: 048
  6. SPECIAFOLDINE 5 MG, COMPRIM? [Concomitant]
     Active Substance: FOLIC ACID
     Dosage: 1 DOSAGE FORM PER DAY
     Route: 048
     Dates: end: 20191109
  7. KARDEGIC [Concomitant]
     Active Substance: ASPIRIN DL-LYSINE
     Dosage: 1 DOSAGE FORM PER DAY
     Route: 048
  8. SOLUPRED [Concomitant]
     Dosage: 10 MILLIGRAM PER DAY
     Route: 048
  9. FUROSEMIDE. [Concomitant]
     Active Substance: FUROSEMIDE
     Dosage: 40 MILLIGRAM PER DAY
     Route: 048
     Dates: end: 20191109
  10. NEORAL [Concomitant]
     Active Substance: CYCLOSPORINE
     Dosage: 220 MILLIGRAM PER DAY
     Route: 048
  11. TRIATEC 5 MG, COMPRIM? SECABLE [Concomitant]
     Dosage: 1 DOSAGE FORM PER DAY
     Route: 048
     Dates: end: 20191109
  12. LANTUS [Concomitant]
     Active Substance: INSULIN GLARGINE
     Dosage: 46IU(INTERNATIONAL UNIT) PER DAY
     Route: 058
  13. ESOMEPRAZOLE. [Concomitant]
     Active Substance: ESOMEPRAZOLE MAGNESIUM
     Dosage: 40 MILLIGRAM PER DAY
     Route: 048

REACTIONS (8)
  - Diarrhoea [Recovered/Resolved]
  - Nausea [Recovered/Resolved]
  - Decreased appetite [Recovered/Resolved]
  - Weight decreased [Recovered/Resolved]
  - Vomiting [Recovered/Resolved]
  - Neutropenia [Recovered/Resolved]
  - Asthenia [Recovered/Resolved]
  - Infection [Recovered/Resolved]

NARRATIVE: CASE EVENT DATE: 201911
